FAERS Safety Report 9303602 (Version 1)
Quarter: 2013Q2

REPORT INFORMATION
  Report Type: Spontaneous
  Country: US (occurrence: None)
  Receive Date: 20130521
  Receipt Date: 20130521
  Transmission Date: 20140414
  Serious: Yes (Other)
  Sender: FDA-Public Use
  Company Number: None

PATIENT
  Age: 65 Year
  Sex: Male
  Weight: 99.79 kg

DRUGS (1)
  1. WELCHOL (COLESEVELAM HYDROCHLORIDE) (625 MILLIGRAM, TABLET) (COLESEVELAM HYDROCHLORIDE) [Suspect]
     Indication: BLOOD CHOLESTEROL INCREASED
     Dosage: 3 PILLS  TWICE DAILY  ORALLY
     Route: 048
     Dates: start: 20130501, end: 20130502

REACTIONS (4)
  - Muscle spasms [None]
  - Diarrhoea [None]
  - Burn oesophageal [None]
  - Drug hypersensitivity [None]
